FAERS Safety Report 13328029 (Version 2)
Quarter: 2017Q2

REPORT INFORMATION
  Report Type: Spontaneous
  Country: US (occurrence: US)
  Receive Date: 20170313
  Receipt Date: 20170516
  Transmission Date: 20170830
  Serious: No
  Sender: FDA-Public Use
  Company Number: US-JNJFOC-20170220249

PATIENT
  Age: 8 Decade
  Sex: Female
  Weight: 95.71 kg

DRUGS (2)
  1. WOMENS ROGAINE UNSCENTED [Suspect]
     Active Substance: MINOXIDIL
     Indication: ALOPECIA
     Dosage: APPLIED LIBERALLY TO WHOLE SCALP
     Route: 061
     Dates: start: 2016
  2. WOMENS ROGAINE UNSCENTED [Suspect]
     Active Substance: MINOXIDIL
     Indication: ALOPECIA
     Dosage: APPLIED LIBERALLY TO WHOLE SCALP
     Route: 061

REACTIONS (5)
  - Therapeutic response unexpected [Unknown]
  - Laziness [Recovering/Resolving]
  - Alopecia [Recovering/Resolving]
  - Product use in unapproved indication [Unknown]
  - Off label use [Unknown]
